FAERS Safety Report 13583064 (Version 2)
Quarter: 2017Q3

REPORT INFORMATION
  Report Type: Spontaneous
  Country: ZA (occurrence: ZA)
  Receive Date: 20170525
  Receipt Date: 20170726
  Transmission Date: 20171127
  Serious: Yes (Death)
  Sender: FDA-Public Use
  Company Number: ZA-IMPAX LABORATORIES, INC-2017-IPXL-01419

PATIENT
  Age: 22 Month

DRUGS (3)
  1. ADRENACLICK [Suspect]
     Active Substance: EPINEPHRINE
     Indication: RESUSCITATION
     Dosage: 0.05 ?G/KG, EVERY MIN
     Route: 065
  2. NOREPINEPHRINE. [Suspect]
     Active Substance: NOREPINEPHRINE
     Indication: RESUSCITATION
     Dosage: 0.05 ?G/KG, EVERY MIN
     Route: 065
  3. PROPRANOLOL HYDROCHLORIDE IR [Suspect]
     Active Substance: PROPRANOLOL HYDROCHLORIDE
     Indication: PRODUCT USED FOR UNKNOWN INDICATION
     Dosage: 4 MG/KG, DAILY
     Route: 065

REACTIONS (5)
  - Intestinal ischaemia [Fatal]
  - Escherichia sepsis [Fatal]
  - Septic shock [Fatal]
  - Klebsiella infection [Fatal]
  - Intestinal obstruction [Fatal]
